FAERS Safety Report 4304325-X (Version None)
Quarter: 2004Q1

REPORT INFORMATION
  Report Type: 
  Country: None (occurrence: None)
  Receive Date: 20040224
  Receipt Date: 20040209
  Transmission Date: 20041129
  Serious: Yes (Hospitalization)
  Sender: FDA-Public Use
  Company Number: 190803

PATIENT
  Sex: Female
  Weight: 58.9676 kg

DRUGS (5)
  1. AVONEX [Suspect]
     Indication: MULTIPLE SCLEROSIS
     Dosage: 30 MCG QW IM
     Route: 030
     Dates: start: 19960701, end: 20030801
  2. AVONEX [Suspect]
     Indication: MULTIPLE SCLEROSIS
     Dosage: 30 MCG QW IM
     Route: 030
     Dates: start: 20030801
  3. ZOVIA 1/35E-21 [Concomitant]
  4. ELAVIL [Concomitant]
  5. DILAUDID [Concomitant]

REACTIONS (7)
  - DYSPNOEA [None]
  - FLUID RETENTION [None]
  - INFLUENZA LIKE ILLNESS [None]
  - INJECTION SITE FIBROSIS [None]
  - MIGRAINE [None]
  - POST PROCEDURAL COMPLICATION [None]
  - SCAR [None]
